FAERS Safety Report 5263005-7 (Version None)
Quarter: 2007Q1

REPORT INFORMATION
  Report Type: 
  Country: None (occurrence: None)
  Receive Date: 20070312
  Receipt Date: 20070308
  Transmission Date: 20070707
  Serious: Yes (Death, Life-Threatening, Hospitalization, Disabling)
  Sender: FDA-Public Use
  Company Number: US-ELI_LILLY_AND_COMPANY-US200604004743

PATIENT
  Age: 40 Year
  Sex: Female

DRUGS (4)
  1. ETOPOSIDE [Suspect]
     Indication: PANCREATIC CARCINOMA
     Dosage: 140 MG, OTHER
     Route: 042
     Dates: start: 20040831
  2. ETOPOSIDE [Suspect]
     Dosage: 100 MG, OTHER
     Route: 042
     Dates: start: 20040901, end: 20050519
  3. GEMCITABINE HCL [Suspect]
     Indication: PANCREATIC CARCINOMA
     Dosage: 1800 MG, OTHER
     Route: 042
     Dates: start: 20040824
  4. GEMCITABINE HCL [Suspect]
     Dosage: 1350 MG, OTHER
     Route: 042
     Dates: start: 20040901, end: 20050517

REACTIONS (2)
  - ACUTE MYELOID LEUKAEMIA [None]
  - ACUTE MYELOID LEUKAEMIA RECURRENT [None]
